FAERS Safety Report 5880132-1 (Version None)
Quarter: 2008Q3

REPORT INFORMATION
  Report Type: 
  Country: None (occurrence: None)
  Receive Date: 20080911
  Receipt Date: 20080911
  Transmission Date: 20090109
  Serious: Yes (Other)
  Sender: FDA-Public Use
  Company Number: None

PATIENT
  Age: 34 Year
  Sex: Male
  Weight: 50.9 kg

DRUGS (13)
  1. ETOMIDATE [Suspect]
     Indication: ENDOTRACHEAL INTUBATION
     Dosage: 20MG ONCE IVP
     Route: 042
     Dates: start: 20080819, end: 20080819
  2. DUONEB [Concomitant]
  3. DIGOXIN [Concomitant]
  4. NEXIUM [Concomitant]
  5. FENTANYL CITRATE [Concomitant]
  6. FUROSEMIDE [Concomitant]
  7. IMIPENEM AND CILASTATIN SODIUM [Concomitant]
  8. METOPROLOL [Concomitant]
  9. METRONIDAZOLE [Concomitant]
  10. MIDAZOLAM HCL [Concomitant]
  11. ZOFRAN [Concomitant]
  12. SODIUM CHLORIDE 0.9% [Concomitant]
  13. VANCOMYCIN HYDROCHLORIDE [Concomitant]

REACTIONS (1)
  - MYOCLONUS [None]
